FAERS Safety Report 4269710-3 (Version None)
Quarter: 2004Q1

REPORT INFORMATION
  Report Type: 
  Country: None (occurrence: None)
  Receive Date: 20040105
  Receipt Date: 20030404
  Transmission Date: 20041129
  Serious: Yes (Disabling)
  Sender: FDA-Public Use
  Company Number: 200210058BBE

PATIENT
  Age: 19 Year
  Sex: Male

DRUGS (9)
  1. HELIXATE [Suspect]
     Indication: FACTOR VIII DEFICIENCY
     Dosage: SEE IMAGE
     Route: 042
     Dates: start: 19981106
  2. HELIXATE [Suspect]
     Indication: FACTOR VIII DEFICIENCY
     Dosage: SEE IMAGE
     Route: 042
     Dates: start: 19990323
  3. HELIXATE [Suspect]
     Indication: FACTOR VIII DEFICIENCY
     Dosage: SEE IMAGE
     Route: 042
     Dates: start: 19990325
  4. HELIXATE [Suspect]
     Indication: FACTOR VIII DEFICIENCY
     Dosage: SEE IMAGE
     Route: 042
     Dates: start: 20001229
  5. HELIXATE [Suspect]
  6. HELIXATE [Suspect]
  7. HEMOFIL [Concomitant]
  8. RECOMBINATE [Concomitant]
  9. KOGENATE [Concomitant]

REACTIONS (1)
  - HEPATITIS A ANTIBODY POSITIVE [None]
